FAERS Safety Report 6240648-5 (Version None)
Quarter: 2009Q2

REPORT INFORMATION
  Report Type: 
  Country: None (occurrence: None)
  Receive Date: 20090623
  Receipt Date: 20081126
  Transmission Date: 20091009
  Serious: No
  Sender: FDA-Public Use
  Company Number: US-ASTRAZENECA-2008UW26500

PATIENT
  Age: 3 Year
  Sex: Male
  Weight: 20 kg

DRUGS (4)
  1. PULMICORT RESPULES [Suspect]
     Indication: MULTIPLE ALLERGIES
     Dosage: 0.5 MG/2 ML TWICE DAILY, EVERY OTHER WEEK FOR 5 DAYS
     Route: 055
     Dates: start: 20081024
  2. XOPENEX [Suspect]
     Route: 065
  3. MUCINEX [Concomitant]
  4. MIRA MIST [Concomitant]

REACTIONS (4)
  - PRODUCTIVE COUGH [None]
  - PRURITUS [None]
  - PSYCHOMOTOR HYPERACTIVITY [None]
  - RASH [None]
